FAERS Safety Report 6708009-X (Version None)
Quarter: 2010Q2

REPORT INFORMATION
  Report Type: 
  Country: None (occurrence: None)
  Receive Date: 20100503
  Receipt Date: 20090429
  Transmission Date: 20101027
  Serious: Yes (Other)
  Sender: FDA-Public Use
  Company Number: US-BAYER-200913618NA

PATIENT
  Age: 41 Year
  Sex: Female

DRUGS (6)
  1. BETASERON [Suspect]
     Indication: MULTIPLE SCLEROSIS
     Route: 058
  2. BETASERON [Suspect]
     Dosage: BETAJECT
     Route: 058
     Dates: start: 20081224
  3. BETASERON [Suspect]
     Route: 058
     Dates: start: 19940209, end: 20080206
  4. ANTIBIOTICS [Concomitant]
     Indication: DRUG USE FOR UNKNOWN INDICATION
     Dates: start: 20060101
  5. ZOLOFT [Concomitant]
     Indication: DEPRESSION
     Dosage: PT REPORTED THAT IS TAKING 3 TYPES OF ANTIBIOTICS (CLINICAL STUDY) FOR ALMOST 3 YERAS
     Dates: start: 20040101
  6. ANTIBIOTICS [Concomitant]
     Indication: SINUSITIS

REACTIONS (9)
  - DEPRESSION [None]
  - INFLUENZA LIKE ILLNESS [None]
  - INJECTION SITE DRYNESS [None]
  - INJECTION SITE ERYTHEMA [None]
  - INNER EAR DISORDER [None]
  - OSTEOPENIA [None]
  - OSTEOPOROSIS [None]
  - PAIN [None]
  - SINUSITIS [None]
